FAERS Safety Report 12893698 (Version 1)
Quarter: 2016Q4

REPORT INFORMATION
  Report Type: Spontaneous
  Country: US (occurrence: US)
  Receive Date: 20161028
  Receipt Date: 20161028
  Transmission Date: 20170207
  Serious: Yes (Other)
  Sender: FDA-Public Use
  Company Number: US-GLAXOSMITHKLINE-US2016GSK158850

PATIENT
  Age: 45 Year
  Sex: Male

DRUGS (1)
  1. BUPROPION. [Suspect]
     Active Substance: BUPROPION

REACTIONS (7)
  - Ejection fraction decreased [Unknown]
  - Tachycardia [Unknown]
  - Cough [Unknown]
  - Cardiomyopathy [Unknown]
  - Palpitations [Unknown]
  - Dyspnoea exertional [Unknown]
  - Cardiac failure [Unknown]
